FAERS Safety Report 9726012 (Version 1)
Quarter: 2013Q4

REPORT INFORMATION
  Report Type: Spontaneous
  Country: US (occurrence: None)
  Receive Date: 20131202
  Receipt Date: 20131202
  Transmission Date: 20140711
  Serious: No
  Sender: FDA-Public Use
  Company Number: None

PATIENT
  Age: 14 Year
  Sex: Female
  Weight: 60.5 kg

DRUGS (1)
  1. ONDANSETRON [Suspect]
     Route: 048

REACTIONS (6)
  - Nausea [None]
  - Musculoskeletal pain [None]
  - Myalgia [None]
  - Burning sensation [None]
  - Rash erythematous [None]
  - Rash pruritic [None]
